FAERS Safety Report 21124142 (Version 1)
Quarter: 2022Q3

REPORT INFORMATION
  Report Type: Other
  Country: CA (occurrence: CA)
  Receive Date: 20220725
  Receipt Date: 20220725
  Transmission Date: 20221027
  Serious: Yes (Other)
  Sender: FDA-Public Use
  Company Number: CA-DENTSPLY-2022SCDP000214

PATIENT
  Age: 64 Year
  Sex: Female

DRUGS (2)
  1. LIDOCAINE\PRILOCAINE [Suspect]
     Active Substance: LIDOCAINE\PRILOCAINE
     Indication: Vulvovaginal pruritus
     Dosage: UNK EUTECTIC MIXTURE OF LOCAL ANESTHETICS
     Route: 061
  2. LIDOCAINE\PRILOCAINE [Suspect]
     Active Substance: LIDOCAINE\PRILOCAINE
     Indication: Vulvovaginal burning sensation

REACTIONS (3)
  - Escherichia infection [Recovered/Resolved]
  - Dermatitis contact [Recovered/Resolved]
  - Vulval ulceration [Recovered/Resolved]
